FAERS Safety Report 4832748-9 (Version None)
Quarter: 2005Q4

REPORT INFORMATION
  Report Type: 
  Country: None (occurrence: None)
  Receive Date: 20051117
  Receipt Date: 20051104
  Transmission Date: 20060501
  Serious: Yes (Other)
  Sender: FDA-Public Use
  Company Number: 2005152241

PATIENT
  Age: 9 Month
  Sex: Female
  Weight: 7.7111 kg

DRUGS (1)
  1. DESITIN CREAMY DIAPER RASH              (ZINC OXIDE) [Suspect]
     Indication: RASH
     Dosage: ^ONCE OR MORE^ DAILY, TOPICAL
     Route: 061
     Dates: start: 20050701

REACTIONS (7)
  - CONSTIPATION [None]
  - CRYING [None]
  - FAECALOMA [None]
  - INTUSSUSCEPTION [None]
  - MEDICATION RESIDUE [None]
  - ORAL INTAKE REDUCED [None]
  - PYREXIA [None]
